FAERS Safety Report 14508425 (Version 4)
Quarter: 2018Q3

REPORT INFORMATION
  Report Type: Report from Study
  Country: None (occurrence: AU)
  Receive Date: 20180209
  Receipt Date: 20180828
  Transmission Date: 20181010
  Serious: Yes (Hospitalization, Other)
  Sender: FDA-Public Use
  Company Number: AU-ABBVIE-18K-008-2250796-00

PATIENT
  Age: 28 Year
  Sex: Male
  Weight: 97 kg

DRUGS (2)
  1. HUMIRA [Suspect]
     Active Substance: ADALIMUMAB
     Indication: CROHN^S DISEASE
     Route: 058
     Dates: start: 20120119
  2. HUMIRA [Suspect]
     Active Substance: ADALIMUMAB
     Route: 058
     Dates: start: 201802

REACTIONS (2)
  - Anal fissure [Unknown]
  - Small intestinal perforation [Recovered/Resolved]

NARRATIVE: CASE EVENT DATE: 201401
